FAERS Safety Report 13493175 (Version 1)
Quarter: 2017Q2

REPORT INFORMATION
  Report Type: Spontaneous
  Country: US (occurrence: US)
  Receive Date: 20170427
  Receipt Date: 20170427
  Transmission Date: 20170830
  Serious: No
  Sender: FDA-Public Use
  Company Number: US-MYLANLABS-2016M1012971

PATIENT
  Sex: Male

DRUGS (1)
  1. LEVALBUTEROL INHALATION SOLUTION USP (CONCENTRATE), 1.25 MG (0.25%) [Suspect]
     Active Substance: LEVALBUTEROL
     Dosage: 1.25 MG/0.5ML, BID
     Route: 055
     Dates: start: 20160324

REACTIONS (2)
  - No adverse event [Not Recovered/Not Resolved]
  - Wrong technique in product usage process [Not Recovered/Not Resolved]

NARRATIVE: CASE EVENT DATE: 20160324
